FAERS Safety Report 11798366 (Version 1)
Quarter: 2015Q4

REPORT INFORMATION
  Report Type: Spontaneous
  Country: IT (occurrence: IT)
  Receive Date: 20151203
  Receipt Date: 20151203
  Transmission Date: 20160305
  Serious: Yes (Hospitalization)
  Sender: FDA-Public Use
  Company Number: PHHY2015IT156296

PATIENT
  Age: 71 Year
  Sex: Female
  Weight: 68 kg

DRUGS (2)
  1. AROMASIN [Concomitant]
     Active Substance: EXEMESTANE
     Indication: BREAST CANCER
     Dosage: 25 MG, UNK
     Route: 048
  2. AFINITOR [Suspect]
     Active Substance: EVEROLIMUS
     Indication: BREAST CANCER
     Dosage: 10 MG, QD
     Route: 048
     Dates: start: 20150521, end: 20151026

REACTIONS (9)
  - Toxicity to various agents [Recovering/Resolving]
  - Nasal herpes [Recovering/Resolving]
  - Asthenia [Unknown]
  - Pollakiuria [Unknown]
  - Glycosuria [Unknown]
  - Dyspnoea [Recovering/Resolving]
  - Stomatitis [Recovering/Resolving]
  - Polyuria [Recovering/Resolving]
  - Pyrexia [Recovering/Resolving]

NARRATIVE: CASE EVENT DATE: 20151026
